FAERS Safety Report 16284781 (Version 2)
Quarter: 2019Q2

REPORT INFORMATION
  Report Type: Spontaneous
  Country: JP (occurrence: JP)
  Receive Date: 20190508
  Receipt Date: 20190516
  Transmission Date: 20190711
  Serious: Yes (Other)
  Sender: FDA-Public Use
  Company Number: JP-SA-2019SA122284

PATIENT
  Age: 59 Year
  Sex: Male

DRUGS (6)
  1. OXALIPLATIN. [Suspect]
     Active Substance: OXALIPLATIN
     Indication: METASTASES TO LYMPH NODES
     Dosage: UNK UNK, QCY, THREE COURSES OF SYSTEMIC CHEMOTHERAPY
  2. GIMERACIL;OTERACIL POTASSIUM;TEGAFUR [Suspect]
     Active Substance: GIMERACIL\OTERACIL\TEGAFUR
     Indication: ADENOCARCINOMA
  3. OXALIPLATIN. [Suspect]
     Active Substance: OXALIPLATIN
     Indication: METASTASES TO LIVER
  4. GIMERACIL;OTERACIL POTASSIUM;TEGAFUR [Suspect]
     Active Substance: GIMERACIL\OTERACIL\TEGAFUR
     Indication: METASTASES TO LYMPH NODES
  5. OXALIPLATIN. [Suspect]
     Active Substance: OXALIPLATIN
     Indication: ADENOCARCINOMA
  6. GIMERACIL;OTERACIL POTASSIUM;TEGAFUR [Suspect]
     Active Substance: GIMERACIL\OTERACIL\TEGAFUR
     Indication: METASTASES TO LIVER
     Dosage: UNK UNK, QCY, THREE COURSES OF SYSTEMIC CHEMOTHERAPY

REACTIONS (2)
  - Platelet count decreased [Unknown]
  - Functional gastrointestinal disorder [Unknown]
